FAERS Safety Report 8575384-3 (Version None)
Quarter: 2012Q3

REPORT INFORMATION
  Report Type: 
  Country: None (occurrence: None)
  Receive Date: 20120807
  Receipt Date: 20120801
  Transmission Date: 20120928
  Serious: No
  Sender: FDA-Public Use
  Company Number: US-PFIZER INC-2012187800

PATIENT
  Age: 55 Year
  Sex: Female

DRUGS (2)
  1. LYRICA [Suspect]
     Dosage: 200 MG, 1X/DAY
  2. LYRICA [Suspect]
     Dosage: 300 MG, 1X/DAY

REACTIONS (2)
  - DIZZINESS [None]
  - RASH [None]
